FAERS Safety Report 8633409 (Version 3)
Quarter: 2014Q1

REPORT INFORMATION
  Report Type: Report from Study
  Country: CA (occurrence: CA)
  Receive Date: 20120625
  Receipt Date: 20140204
  Transmission Date: 20141002
  Serious: Yes (Other)
  Sender: FDA-Public Use
  Company Number: CA-ROCHE-1079378

PATIENT
  Age: 50 Year
  Sex: Male
  Weight: 62.1 kg

DRUGS (12)
  1. RITUXAN [Suspect]
     Indication: RHEUMATOID ARTHRITIS
     Route: 042
     Dates: start: 20090110, end: 20110404
  2. EURO-FOLIC [Concomitant]
  3. METHOTREXATE [Concomitant]
  4. CELEBREX [Concomitant]
  5. PANTOLOC [Concomitant]
  6. CAL-D3 [Concomitant]
  7. VOLTAREN [Concomitant]
  8. VIAGRA [Concomitant]
  9. ACLASTA [Concomitant]
  10. DIPHENHYDRAMINE HCL [Concomitant]
     Route: 048
     Dates: start: 20100111
  11. ACETAMINOPHEN [Concomitant]
     Route: 048
     Dates: start: 20100111
  12. METHYLPREDNISOLONE [Concomitant]
     Route: 042
     Dates: start: 20100111

REACTIONS (5)
  - Knee arthroplasty [Unknown]
  - Road traffic accident [Unknown]
  - Skull fracture [Unknown]
  - Arthralgia [Unknown]
  - Weight increased [Unknown]
